FAERS Safety Report 12869332 (Version 1)
Quarter: 2016Q4

REPORT INFORMATION
  Report Type: Spontaneous
  Country: FR (occurrence: FR)
  Receive Date: 20161021
  Receipt Date: 20161021
  Transmission Date: 20170207
  Serious: Yes (Hospitalization)
  Sender: FDA-Public Use
  Company Number: FR-009507513-1610FRA006335

PATIENT
  Age: 80 Year
  Sex: Male

DRUGS (10)
  1. INVANZ [Suspect]
     Active Substance: ERTAPENEM SODIUM
     Indication: URINARY TRACT INFECTION
     Dosage: 1 G, 1 QD
     Route: 042
     Dates: start: 20160906, end: 20160921
  2. LUDIOMIL [Suspect]
     Active Substance: MAPROTILINE HYDROCHLORIDE
     Dosage: 37.5 MG QD, LONG TERM
     Route: 048
     Dates: end: 20160917
  3. BISOPROLOL [Concomitant]
     Active Substance: BISOPROLOL
     Dosage: LONG TERM
     Dates: start: 2016
  4. INEXIUM (ESOMEPRAZOLE SODIUM) [Concomitant]
     Active Substance: ESOMEPRAZOLE SODIUM
     Dosage: UPPER THAN 2 WEEKS
     Dates: start: 2016
  5. XATRAL [Concomitant]
     Active Substance: ALFUZOSIN
     Dosage: UNK
     Dates: start: 201608
  6. LEXOMIL [Concomitant]
     Active Substance: BROMAZEPAM
     Dosage: LONG TERM
     Dates: start: 2016
  7. DOLIPRANE [Concomitant]
     Active Substance: ACETAMINOPHEN
     Dosage: UNK
     Dates: start: 20160831
  8. LASILIX [Concomitant]
     Active Substance: FUROSEMIDE
     Dosage: LONG TERM
     Dates: start: 2016
  9. SPASFON [Concomitant]
     Active Substance: PHLOROGLUCINOL
     Dosage: IF NECESSARY
     Dates: start: 20160902
  10. MOVICOL [Concomitant]
     Active Substance: POLYETHYLENE GLYCOL 3350\POTASSIUM CHLORIDE\SODIUM BICARBONATE\SODIUM CHLORIDE
     Dosage: UNK
     Dates: start: 20160831

REACTIONS (2)
  - Confusional state [Recovering/Resolving]
  - Balance disorder [Recovering/Resolving]

NARRATIVE: CASE EVENT DATE: 20160916
